FAERS Safety Report 18555608 (Version 1)
Quarter: 2020Q4

REPORT INFORMATION
  Report Type: Report from Study
  Country: IN (occurrence: IN)
  Receive Date: 20201127
  Receipt Date: 20201127
  Transmission Date: 20210114
  Serious: Yes (Death, Hospitalization)
  Sender: FDA-Public Use
  Company Number: IN-ASTRAZENECA-2020SF57022

PATIENT
  Age: 57 Year
  Sex: Male

DRUGS (11)
  1. MUCAIN GEL [Concomitant]
     Indication: HYPERCHLORHYDRIA
     Route: 048
     Dates: end: 20200315
  2. ASPIRIN. [Concomitant]
     Active Substance: ASPIRIN
     Indication: CARDIAC DISORDER
     Route: 048
     Dates: end: 20200315
  3. CRESTOR [Concomitant]
     Active Substance: ROSUVASTATIN CALCIUM
     Indication: BLOOD CHOLESTEROL ABNORMAL
     Route: 048
     Dates: end: 20200315
  4. JALRA M [Concomitant]
     Active Substance: METFORMIN HYDROCHLORIDE\VILDAGLIPTIN
     Indication: DIABETES MELLITUS
     Route: 048
     Dates: end: 20200315
  5. RENOZEX [Concomitant]
     Indication: CARDIAC DISORDER
     Route: 048
     Dates: end: 20200315
  6. DIAMICRON [Concomitant]
     Active Substance: GLICLAZIDE
     Indication: DIABETES MELLITUS
     Route: 048
     Dates: end: 20200315
  7. DYTOR E [Concomitant]
     Indication: BLOOD PRESSURE ABNORMAL
     Route: 048
     Dates: end: 20200315
  8. BRILINTA [Suspect]
     Active Substance: TICAGRELOR
     Indication: CARDIAC DISORDER
     Route: 048
     Dates: start: 20200306, end: 20200315
  9. PAN40 [Concomitant]
     Indication: HYPERCHLORHYDRIA
     Route: 048
     Dates: end: 20200315
  10. CARDACEMETO [Concomitant]
     Indication: BLOOD PRESSURE ABNORMAL
     Route: 048
     Dates: end: 20200315
  11. LINID [Concomitant]
     Indication: CARDIAC DISORDER
     Route: 048
     Dates: end: 20200315

REACTIONS (2)
  - Death [Fatal]
  - Malaise [Unknown]

NARRATIVE: CASE EVENT DATE: 20200315
